FAERS Safety Report 4336551-8 (Version None)
Quarter: 2004Q2

REPORT INFORMATION
  Report Type: 
  Country: None (occurrence: None)
  Receive Date: 20040407
  Receipt Date: 20040322
  Transmission Date: 20050107
  Serious: Yes (Hospitalization, Other)
  Sender: FDA-Public Use
  Company Number: USA031255491

PATIENT
  Age: 76 Year
  Sex: Female
  Weight: 41 kg

DRUGS (5)
  1. FORTEO [Suspect]
     Indication: OSTEOPOROSIS
     Dates: start: 20030701, end: 20031218
  2. PROZAC [Concomitant]
  3. SULINDAC [Concomitant]
  4. LEVOTHYROID (LEVOTHYROXINE SODIUM) [Concomitant]
  5. ACETYLSALICYLIC ACID SRT [Concomitant]

REACTIONS (2)
  - BILE DUCT STENOSIS [None]
  - PANCREATITIS [None]
